FAERS Safety Report 5022615-2 (Version None)
Quarter: 2006Q2

REPORT INFORMATION
  Report Type: 
  Country: None (occurrence: None)
  Receive Date: 20060605
  Receipt Date: 20060520
  Transmission Date: 20061013
  Serious: Yes (Other)
  Sender: FDA-Public Use
  Company Number: 2005107312

PATIENT
  Age: 78 Year
  Sex: Female

DRUGS (4)
  1. TOLTERODINE TARTRATE [Suspect]
     Indication: URINARY INCONTINENCE
     Dosage: 4 MG (4 MG, 1 IN 1 D), ORAL
     Route: 048
     Dates: start: 20040101
  2. TOLTERODINE TARTRATE [Suspect]
     Indication: URINARY INCONTINENCE
     Dosage: ORAL
     Route: 048
     Dates: start: 20000101, end: 20040101
  3. ZANIDIP (LERCANIDIPINE) [Concomitant]
  4. GINKGO BILOBA (GINKGO BILOBA) [Concomitant]

REACTIONS (2)
  - DIZZINESS [None]
  - VOMITING [None]
